FAERS Safety Report 6537671-X (Version None)
Quarter: 2010Q1

REPORT INFORMATION
  Report Type: 
  Country: None (occurrence: None)
  Receive Date: 20100114
  Receipt Date: 20100103
  Transmission Date: 20100710
  Serious: Yes (Death, Life-Threatening, Hospitalization)
  Sender: FDA-Public Use
  Company Number: Z0001308E

PATIENT
  Sex: Male
  Weight: 69 kg

DRUGS (1)
  1. ELTROMBOPAG [Suspect]
     Indication: THROMBOCYTOPENIA
     Dosage: 75MG PER DAY
     Route: 048
     Dates: start: 20090707, end: 20090720

REACTIONS (7)
  - CHRONIC HEPATIC FAILURE [None]
  - COLITIS ISCHAEMIC [None]
  - INTESTINAL PERFORATION [None]
  - LIVER TRANSPLANT [None]
  - PERITONITIS [None]
  - PORTAL VEIN THROMBOSIS [None]
  - SEPSIS [None]
